FAERS Safety Report 20408929 (Version 1)
Quarter: 2022Q1

REPORT INFORMATION
  Report Type: Other
  Country: US (occurrence: None)
  Receive Date: 20220201
  Receipt Date: 20220201
  Transmission Date: 20220423
  Serious: Yes (Other)
  Sender: FDA-Public Use
  Company Number: US-ROCHE-2766343

PATIENT
  Sex: Female
  Weight: 52.664 kg

DRUGS (4)
  1. OCREVUS [Suspect]
     Active Substance: OCRELIZUMAB
     Indication: Relapsing-remitting multiple sclerosis
     Dosage: DATES OF TREATMENT: 26/OCT/2019, 09/NOV/2019, 14/AUG/2020, 300MG ON DAY 1 AND DAY 15 LATER 600MG EVE
     Route: 042
     Dates: start: 2019
  2. OCREVUS [Suspect]
     Active Substance: OCRELIZUMAB
     Indication: Relapsing multiple sclerosis
  3. PRISTIQ EXTENDED-RELEASE [Concomitant]
     Active Substance: DESVENLAFAXINE SUCCINATE
     Indication: Depression
     Route: 048
     Dates: start: 2010
  4. CLONAZEPAM [Concomitant]
     Active Substance: CLONAZEPAM
     Indication: Neuralgia
     Dosage: 2 AT NIGHT
     Route: 048

REACTIONS (3)
  - Fall [Unknown]
  - Throat irritation [Recovered/Resolved]
  - Pharyngeal swelling [Recovered/Resolved]

NARRATIVE: CASE EVENT DATE: 20200101
